FAERS Safety Report 24771544 (Version 1)
Quarter: 2024Q4

REPORT INFORMATION
  Report Type: Spontaneous
  Country: CN (occurrence: CN)
  Receive Date: 20241224
  Receipt Date: 20241224
  Transmission Date: 20250114
  Serious: Yes (Life-Threatening, Hospitalization, Other)
  Sender: JOHNSON AND JOHNSON
  Company Number: CN-BAYER-2024A179587

PATIENT
  Age: 80 Year
  Sex: Male
  Weight: 70 kg

DRUGS (7)
  1. XARELTO [Suspect]
     Active Substance: RIVAROXABAN
     Indication: Deep vein thrombosis
     Dosage: 10 MG, QD
     Route: 048
     Dates: start: 20241129, end: 20241205
  2. XARELTO [Suspect]
     Active Substance: RIVAROXABAN
     Indication: Anticoagulant therapy
  3. ASPIRIN [Suspect]
     Active Substance: ASPIRIN
     Indication: Cerebrovascular accident prophylaxis
     Dosage: 0.1 G, QD
     Route: 048
     Dates: start: 20241123, end: 20241205
  4. ASPIRIN [Suspect]
     Active Substance: ASPIRIN
     Indication: Anticoagulant therapy
  5. CLOPIDOGREL [Concomitant]
     Active Substance: CLOPIDOGREL BISULFATE
     Indication: Anticoagulant therapy
     Dosage: 75 MG, QD
     Route: 048
     Dates: start: 20241123, end: 20241128
  6. RABEPRAZOLE SODIUM [Concomitant]
     Active Substance: RABEPRAZOLE SODIUM
     Indication: Antacid therapy
     Dosage: 10 MG, QD
     Route: 048
     Dates: start: 20241128, end: 20241129
  7. RABEPRAZOLE SODIUM [Concomitant]
     Active Substance: RABEPRAZOLE SODIUM
     Indication: Gastrointestinal disorder prophylaxis

REACTIONS (16)
  - Upper gastrointestinal haemorrhage [Recovering/Resolving]
  - Basal ganglia haemorrhage [Unknown]
  - Altered state of consciousness [Unknown]
  - Unresponsive to stimuli [Unknown]
  - Dyspnoea [Unknown]
  - Blood loss anaemia [Recovering/Resolving]
  - Coma [Unknown]
  - Pyrexia [Unknown]
  - Vomiting [Unknown]
  - Productive cough [Unknown]
  - Temperature intolerance [Unknown]
  - Chills [Unknown]
  - Underdose [Unknown]
  - Prescribed underdose [Unknown]
  - Inappropriate schedule of product administration [Unknown]
  - Product prescribing issue [Unknown]

NARRATIVE: CASE EVENT DATE: 20241129
